FAERS Safety Report 11165037 (Version 14)
Quarter: 2016Q4

REPORT INFORMATION
  Report Type: Report from Study
  Country: CA (occurrence: CA)
  Receive Date: 20150604
  Receipt Date: 20161018
  Transmission Date: 20170206
  Serious: Yes (Other)
  Sender: FDA-Public Use
  Company Number: PHHY2015CA037521

PATIENT
  Age: 65 Year
  Sex: Female

DRUGS (4)
  1. SANDOSTATIN LAR DEPOT [Suspect]
     Active Substance: OCTREOTIDE ACETATE
     Indication: CARCINOID TUMOUR OF THE SMALL BOWEL
     Dosage: 20 MG, QMO
     Route: 030
     Dates: start: 20150331
  2. SANDOSTATIN LAR DEPOT [Suspect]
     Active Substance: OCTREOTIDE ACETATE
     Dosage: 30 MG, QMO
     Route: 030
     Dates: start: 20160307
  3. SANDOSTATIN [Suspect]
     Active Substance: OCTREOTIDE ACETATE
     Indication: CARCINOID TUMOUR OF THE SMALL BOWEL
     Dosage: 200 UG, TID
     Route: 058
     Dates: start: 20150203, end: 201504
  4. SANDOSTATIN LAR DEPOT [Suspect]
     Active Substance: OCTREOTIDE ACETATE
     Dosage: 40 MG, QMO (Q4 WEEKS)
     Route: 030
     Dates: start: 20160315

REACTIONS (32)
  - Faecaloma [Unknown]
  - Intervertebral disc degeneration [Unknown]
  - Onychoclasis [Unknown]
  - Alopecia [Unknown]
  - Pain [Unknown]
  - Rhinorrhoea [Unknown]
  - Pain in extremity [Unknown]
  - Fatigue [Unknown]
  - Back disorder [Unknown]
  - Blood urine present [Unknown]
  - Back pain [Unknown]
  - Blood pressure increased [Unknown]
  - Nail growth abnormal [Unknown]
  - Mobility decreased [Unknown]
  - Injection site pain [Unknown]
  - Flatulence [Unknown]
  - Malignant neoplasm progression [Unknown]
  - Haemorrhoids [Unknown]
  - Insomnia [Unknown]
  - Myalgia [Not Recovered/Not Resolved]
  - Nasopharyngitis [Unknown]
  - Oropharyngeal pain [Unknown]
  - Pollakiuria [Unknown]
  - Urinary incontinence [Unknown]
  - Blood pressure systolic increased [Unknown]
  - Ligament sprain [Unknown]
  - Blood cholesterol increased [Unknown]
  - Exostosis [Unknown]
  - Abdominal pain [Unknown]
  - Metastasis [Unknown]
  - Constipation [Unknown]
  - Dyspnoea [Unknown]

NARRATIVE: CASE EVENT DATE: 2015
